FAERS Safety Report 8888380 (Version 1)
Quarter: 2012Q4

REPORT INFORMATION
  Report Type: 
  Country: RU (occurrence: RU)
  Receive Date: 20121106
  Receipt Date: 20121106
  Transmission Date: 20130627
  Serious: Yes (Hospitalization)
  Sender: FDA-Public Use
  Company Number: PHHY2012RU096812

PATIENT
  Age: 40 Year
  Sex: Male

DRUGS (4)
  1. CO-EXFORGE [Suspect]
     Dosage: 1 DF, (160 mg vals/10 mg amlo/ unknown HCTZ)
  2. EXFORGE [Suspect]
     Dosage: 1 DF, (160 mg vals/ 5 mg amlo)
  3. BRITOMAR [Suspect]
     Dosage: 5 mg, UNK
  4. ANTIHYPERTENSIVE DRUGS [Concomitant]

REACTIONS (6)
  - Cerebrovascular accident [Unknown]
  - Dizziness [Unknown]
  - Vomiting [Unknown]
  - Nausea [Unknown]
  - Headache [Unknown]
  - Blood pressure increased [Unknown]
